FAERS Safety Report 23725739 (Version 4)
Quarter: 2024Q3

REPORT INFORMATION
  Report Type: Report from Study
  Country: JP (occurrence: JP)
  Receive Date: 20240410
  Receipt Date: 20240926
  Transmission Date: 20241016
  Serious: No
  Sender: UCB
  Company Number: JP-UCBSA-2023045359

PATIENT
  Age: 16 Year
  Sex: Male
  Weight: 47 kg

DRUGS (9)
  1. FENFLURAMINE HYDROCHLORIDE [Suspect]
     Active Substance: FENFLURAMINE HYDROCHLORIDE
     Indication: Severe myoclonic epilepsy of infancy
     Dosage: 0.05 MILLIGRAM/KILOGRAM, 2X/DAY (BID)
     Route: 048
     Dates: start: 20230810
  2. FENFLURAMINE HYDROCHLORIDE [Suspect]
     Active Substance: FENFLURAMINE HYDROCHLORIDE
     Dosage: 0.1 MILLIGRAM/KILOGRAM, 2X/DAY (BID)
     Route: 048
     Dates: start: 20240104
  3. LEVETIRACETAM [Concomitant]
     Active Substance: LEVETIRACETAM
     Indication: Severe myoclonic epilepsy of infancy
     Dosage: 500 MILLIGRAM, ONCE DAILY (QD)
     Route: 048
  4. DIACOMIT [Concomitant]
     Active Substance: STIRIPENTOL
     Indication: Severe myoclonic epilepsy of infancy
     Dosage: 2000 MILLIGRAM, ONCE DAILY (QD)
     Route: 048
  5. MYSTAN [Concomitant]
     Active Substance: CLOBAZAM
     Indication: Severe myoclonic epilepsy of infancy
     Dosage: 1 MILLIGRAM, ONCE DAILY (QD)
     Route: 048
  6. DEPAKENE [Concomitant]
     Active Substance: VALPROIC ACID
     Indication: Severe myoclonic epilepsy of infancy
     Dosage: 650 MILLIGRAM, ONCE DAILY (QD)
     Route: 048
  7. POTASSIUM BROMIDE [Concomitant]
     Active Substance: POTASSIUM BROMIDE
     Indication: Severe myoclonic epilepsy of infancy
     Dosage: 2.7 GRAM, ONCE DAILY (QD)
     Route: 048
  8. RISPERIDONE [Concomitant]
     Active Substance: RISPERIDONE
     Indication: Anger
     Dosage: 0.6 MILLIGRAM, ONCE DAILY (QD)
     Route: 048
  9. HERBALS [Concomitant]
     Active Substance: HERBALS
     Indication: Anger
     Dosage: 3 GRAM, ONCE DAILY (QD)
     Route: 048

REACTIONS (3)
  - Somnolence [Unknown]
  - Off label use [Unknown]
  - Prescribed underdose [Unknown]

NARRATIVE: CASE EVENT DATE: 20230810
